FAERS Safety Report 8663232 (Version 3)
Quarter: 2012Q4

REPORT INFORMATION
  Report Type: 
  Country: DE (occurrence: DE)
  Receive Date: 20120713
  Receipt Date: 20120906
  Transmission Date: 20130627
  Serious: Yes (Hospitalization)
  Sender: FDA-Public Use
  Company Number: PHHY2012DE059551

PATIENT
  Age: 20 Year
  Sex: Female

DRUGS (3)
  1. RIAMET [Suspect]
     Indication: MALARIA
     Route: 048
     Dates: start: 20120702
  2. CIPROFLOXACIN [Suspect]
     Indication: MALARIA
     Dates: start: 20120702
  3. MALARONE [Suspect]
     Dates: start: 201203, end: 201204

REACTIONS (4)
  - Psychotic disorder [Unknown]
  - Aggression [Unknown]
  - Restlessness [Unknown]
  - Insomnia [Unknown]
